FAERS Safety Report 13122900 (Version 1)
Quarter: 2017Q1

REPORT INFORMATION
  Report Type: Spontaneous
  Country: IT (occurrence: IT)
  Receive Date: 20170117
  Receipt Date: 20170117
  Transmission Date: 20170428
  Serious: Yes (Other)
  Sender: FDA-Public Use
  Company Number: IT-PFIZER INC-2017011553

PATIENT
  Age: 78 Year
  Sex: Male

DRUGS (4)
  1. LEUCOVORIN /00566702/ [Suspect]
     Active Substance: LEUCOVORIN
     Indication: ADENOCARCINOMA GASTRIC
     Dosage: 400 MG/M2, CYCLIC  (REPEATED EVERY 14 DAYS, FOR 12 ADMINISTRATIONS)
     Route: 042
  2. FLUOROURACIL. [Suspect]
     Active Substance: FLUOROURACIL
     Indication: ADENOCARCINOMA GASTRIC
     Dosage: 400 MG/M2, CYCLIC ((REPEATED EVERY 14 DAYS, FOR 12 ADMINISTRATIONS)
     Route: 040
  3. OXALIPLATIN. [Suspect]
     Active Substance: OXALIPLATIN
     Indication: ADENOCARCINOMA GASTRIC
     Dosage: 85 MG/M2, CYCLIC (REPEATED EVERY 14 DAYS, FOR 12 ADMINISTRATIONS)
     Route: 042
  4. FLUOROURACIL. [Suspect]
     Active Substance: FLUOROURACIL
     Dosage: 2400 MG/M2, CYCLIC (OVER 46 H BY CONTINUOUS INFUSION) ((REPEATED EVERY 14 DAYS,FOR 12ADMINISTRATION)
     Route: 042

REACTIONS (2)
  - Neurotoxicity [Unknown]
  - Neutropenia [Unknown]
